FAERS Safety Report 24258440 (Version 1)
Quarter: 2024Q3

REPORT INFORMATION
  Report Type: Spontaneous
  Country: US (occurrence: US)
  Receive Date: 20240828
  Receipt Date: 20240828
  Transmission Date: 20241017
  Serious: Yes (Other)
  Sender: BIOCODEX
  Company Number: US-BIOCODEX2-2022000011

PATIENT
  Sex: Male
  Weight: 18 kg

DRUGS (4)
  1. DIACOMIT [Suspect]
     Active Substance: STIRIPENTOL
     Indication: Epilepsy
     Dosage: 250 MG, TWICE PER DAY
     Route: 048
     Dates: start: 20190521
  2. ONFI [Concomitant]
     Active Substance: CLOBAZAM
     Indication: Epilepsy
     Dosage: 0.3 ML TWICE PER DAY. (2.5 MG/ML)
     Route: 065
     Dates: start: 20171018
  3. DEPAKOTE [Concomitant]
     Active Substance: DIVALPROEX SODIUM
     Indication: Epilepsy
     Dosage: 125 MG AT MORNING AND 250 MG IN THE AFTERNOON
     Route: 065
     Dates: start: 20141211
  4. TOPAMAX [Concomitant]
     Active Substance: TOPIRAMATE
     Indication: Epilepsy
     Dosage: 25 MG IN THE MORNING AND 50 MG IN THE AFTERNOON
     Route: 065
     Dates: start: 20170815

REACTIONS (4)
  - Product use in unapproved indication [Unknown]
  - Pyrexia [Unknown]
  - Ear infection [Unknown]
  - Brain injury [Unknown]
